FAERS Safety Report 11639686 (Version 1)
Quarter: 2015Q4

REPORT INFORMATION
  Report Type: Spontaneous
  Country: US (occurrence: US)
  Receive Date: 20151019
  Receipt Date: 20151019
  Transmission Date: 20160304
  Serious: No
  Sender: FDA-Public Use
  Company Number: US-PAR PHARMACEUTICAL, INC-2015SCPR014229

PATIENT

DRUGS (3)
  1. OMEGA-3-ACID ETHYL ESTERS. [Suspect]
     Active Substance: OMEGA-3-ACID ETHYL ESTERS
     Dosage: 4 DF, OD
     Route: 048
     Dates: start: 2015, end: 20150821
  2. METFORMIN [Concomitant]
     Active Substance: METFORMIN HYDROCHLORIDE
     Indication: DIABETES MELLITUS
     Dosage: 4 DF, / DAY
     Route: 048
  3. OMEGA-3-ACID ETHYL ESTERS. [Suspect]
     Active Substance: OMEGA-3-ACID ETHYL ESTERS
     Indication: BLOOD TRIGLYCERIDES INCREASED
     Dosage: 4 DF, OD
     Route: 048
     Dates: start: 201504, end: 2015

REACTIONS (3)
  - Product quality issue [Unknown]
  - Product odour abnormal [Unknown]
  - Eructation [Recovered/Resolved]

NARRATIVE: CASE EVENT DATE: 201504
